FAERS Safety Report 13207932 (Version 1)
Quarter: 2017Q1

REPORT INFORMATION
  Report Type: Spontaneous
  Country: US (occurrence: US)
  Receive Date: 20170209
  Receipt Date: 20170209
  Transmission Date: 20170428
  Serious: No
  Sender: FDA-Public Use
  Company Number: US-BAYER-2017-023401

PATIENT
  Age: 53 Year
  Sex: Female

DRUGS (1)
  1. CLIMARA PRO [Suspect]
     Active Substance: ESTRADIOL\LEVONORGESTREL
     Indication: MENOPAUSAL SYMPTOMS
     Dosage: 0.045 / 0.015 MG/DAY
     Route: 062
     Dates: start: 20170110

REACTIONS (5)
  - Migraine [None]
  - Device breakage [None]
  - Product availability issue [None]
  - Thyroid disorder [None]
  - Product physical issue [None]

NARRATIVE: CASE EVENT DATE: 20170110
